FAERS Safety Report 4536936-0 (Version None)
Quarter: 2004Q4

REPORT INFORMATION
  Report Type: 
  Country: None (occurrence: None)
  Receive Date: 20041220
  Receipt Date: 20041210
  Transmission Date: 20050328
  Serious: Yes (Hospitalization, Other)
  Sender: FDA-Public Use
  Company Number: KII-2004-0014222

PATIENT
  Age: 27 Year
  Sex: Male

DRUGS (2)
  1. MORPHINE SULFATE [Suspect]
     Dosage: INTRAVENOUS
     Route: 042
  2. TETRAHYDROCANNABINOL (TETRAHYDROCANNABINOL) [Suspect]

REACTIONS (17)
  - ABSCESS JAW [None]
  - BLOOD CREATINE PHOSPHOKINASE INCREASED [None]
  - CHEST PAIN [None]
  - COMA [None]
  - COUGH [None]
  - DRUG ABUSER [None]
  - ERYTHEMA [None]
  - HAEMOPTYSIS [None]
  - LIVER FUNCTION TEST ABNORMAL [None]
  - MALAISE [None]
  - OVERDOSE [None]
  - PAIN IN EXTREMITY [None]
  - PALLOR [None]
  - PNEUMONIA ASPIRATION [None]
  - PULMONARY VASCULAR DISORDER [None]
  - SINUS TACHYCARDIA [None]
  - SOMNOLENCE [None]
